FAERS Safety Report 22853584 (Version 3)
Quarter: 2023Q4

REPORT INFORMATION
  Report Type: Spontaneous
  Country: US (occurrence: US)
  Receive Date: 20230823
  Receipt Date: 20231124
  Transmission Date: 20240109
  Serious: Yes (Other)
  Sender: FDA-Public Use
  Company Number: US-SA-SAC20230817001023

PATIENT
  Sex: Male

DRUGS (1)
  1. DUPIXENT [Suspect]
     Active Substance: DUPILUMAB
     Indication: Asthma
     Dosage: 300 MG, QOW
     Route: 058
     Dates: start: 202111

REACTIONS (8)
  - Dementia [Unknown]
  - Retching [Unknown]
  - Dyspnoea [Unknown]
  - Condition aggravated [Unknown]
  - Insomnia [Unknown]
  - Conjunctivitis [Unknown]
  - Asthma [Unknown]
  - Therapeutic response decreased [Unknown]
